FAERS Safety Report 11700712 (Version 1)
Quarter: 2015Q4

REPORT INFORMATION
  Report Type: Spontaneous
  Country: US (occurrence: US)
  Receive Date: 20151105
  Receipt Date: 20151105
  Transmission Date: 20160304
  Serious: No
  Sender: FDA-Public Use
  Company Number: US-LEO PHARMA-237949

PATIENT
  Age: 69 Year
  Sex: Female

DRUGS (1)
  1. PICATO [Suspect]
     Active Substance: INGENOL MEBUTATE
     Indication: ACTINIC KERATOSIS
     Dates: start: 20151014, end: 20151016

REACTIONS (5)
  - Application site pustules [Recovering/Resolving]
  - Application site pain [Recovered/Resolved]
  - Application site swelling [Recovering/Resolving]
  - Application site scab [Recovered/Resolved]
  - Application site erythema [Recovering/Resolving]

NARRATIVE: CASE EVENT DATE: 20151014
